FAERS Safety Report 9147442 (Version 2)
Quarter: 2013Q4

REPORT INFORMATION
  Report Type: Spontaneous
  Country: US (occurrence: US)
  Receive Date: 20130307
  Receipt Date: 20131206
  Transmission Date: 20140711
  Serious: No
  Sender: FDA-Public Use
  Company Number: US-ASTRAZENECA-2013SE12841

PATIENT
  Age: 37 Year
  Sex: Female
  Weight: 104.3 kg

DRUGS (8)
  1. NEXIUM [Suspect]
     Indication: GASTROOESOPHAGEAL REFLUX DISEASE
     Route: 048
     Dates: start: 2000, end: 2008
  2. NEXIUM [Suspect]
     Indication: GASTROOESOPHAGEAL REFLUX DISEASE
     Route: 048
     Dates: start: 2000, end: 2008
  3. OMEPRAZOLE [Suspect]
     Indication: GASTROOESOPHAGEAL REFLUX DISEASE
     Route: 048
     Dates: start: 2009
  4. OMEPRAZOLE [Suspect]
     Indication: GASTROOESOPHAGEAL REFLUX DISEASE
     Route: 048
     Dates: start: 2009
  5. IBUPROFEN [Concomitant]
     Indication: ARTHRITIS
  6. IBUPROFEN [Concomitant]
     Indication: PAIN
  7. PRENATAL VITAMINS [Concomitant]
     Indication: ANAEMIA
  8. XANAX [Concomitant]
     Indication: ANXIETY

REACTIONS (7)
  - Gastrooesophageal reflux disease [Unknown]
  - Anaemia [Not Recovered/Not Resolved]
  - Arthritis [Not Recovered/Not Resolved]
  - Dyspepsia [Not Recovered/Not Resolved]
  - Activities of daily living impaired [Not Recovered/Not Resolved]
  - Intentional drug misuse [Recovered/Resolved]
  - Drug ineffective [Not Recovered/Not Resolved]
